FAERS Safety Report 15430794 (Version 1)
Quarter: 2018Q4

REPORT INFORMATION
  Report Type: Spontaneous
  Country: US (occurrence: US)
  Receive Date: 20180926
  Receipt Date: 20180926
  Transmission Date: 20190204
  Serious: No
  Sender: FDA-Public Use
  Company Number: US-AVEDRO-AVE-2018-0192-AE

PATIENT

DRUGS (1)
  1. CROSS-LINKING PRODUCT(S), UNSPECIFIED [Suspect]
     Active Substance: RIBOFLAVIN 5^-PHOSPHATE SODIUM
     Indication: KERATOCONUS
     Route: 047

REACTIONS (4)
  - Eye pain [Recovered/Resolved]
  - Photophobia [Recovered/Resolved]
  - Vision blurred [Unknown]
  - Ocular discomfort [Recovered/Resolved]
